FAERS Safety Report 5922107-X (Version None)
Quarter: 2008Q4

REPORT INFORMATION
  Report Type: 
  Country: None (occurrence: None)
  Receive Date: 20081017
  Receipt Date: 20081007
  Transmission Date: 20090506
  Serious: Yes (Other)
  Sender: FDA-Public Use
  Company Number: US-BAYER-200835183NA

PATIENT
  Age: 41 Year
  Sex: Female
  Weight: 48 kg

DRUGS (2)
  1. YAZ [Suspect]
     Indication: PREMENSTRUAL SYNDROME
     Route: 048
     Dates: start: 20080601
  2. XANAX [Concomitant]
     Indication: STRESS

REACTIONS (3)
  - ANGER [None]
  - PREMENSTRUAL SYNDROME [None]
  - VIOLENCE-RELATED SYMPTOM [None]
